FAERS Safety Report 26130454 (Version 1)
Quarter: 2025Q4

REPORT INFORMATION
  Report Type: Spontaneous
  Country: EU (occurrence: EU)
  Receive Date: 20251208
  Receipt Date: 20251208
  Transmission Date: 20260117
  Serious: Yes (Other)
  Sender: KYOWA
  Company Number: EU-KYOWAKIRIN-2023KK017581

PATIENT

DRUGS (5)
  1. POTELIGEO [Suspect]
     Active Substance: MOGAMULIZUMAB-KPKC
     Indication: Cutaneous T-cell lymphoma stage IV
     Dosage: 1 MG/KG, 1X/WEEK(FIRST CYCLE)
     Route: 042
     Dates: start: 202101
  2. POTELIGEO [Suspect]
     Active Substance: MOGAMULIZUMAB-KPKC
     Dosage: 1 MG/KG, 1X/WEEK(8 CYCLE)
     Route: 042
  3. POTELIGEO [Suspect]
     Active Substance: MOGAMULIZUMAB-KPKC
     Dosage: 1 MG/KG, 1X/WEEK(15 CYCLE)
     Route: 042
  4. POTELIGEO [Suspect]
     Active Substance: MOGAMULIZUMAB-KPKC
     Dosage: 1 MG/KG, 1X/WEEK(22 CYCLE)
     Route: 042
  5. POTELIGEO [Suspect]
     Active Substance: MOGAMULIZUMAB-KPKC
     Dosage: UNK, EVERY 15 DAYS
     Route: 065

REACTIONS (2)
  - Cholestasis [Unknown]
  - Drug eruption [Recovered/Resolved]

NARRATIVE: CASE EVENT DATE: 20210101
